FAERS Safety Report 7295554-4 (Version None)
Quarter: 2011Q1

REPORT INFORMATION
  Report Type: 
  Country: None (occurrence: None)
  Receive Date: 20110216
  Receipt Date: 20110209
  Transmission Date: 20110831
  Serious: Yes (Hospitalization, Other)
  Sender: FDA-Public Use
  Company Number: US-AMGEN-USASP2011007694

PATIENT
  Age: 80 Year
  Sex: Female

DRUGS (15)
  1. ASPIRIN [Concomitant]
     Dosage: 1 MG, UNK
  2. GLUCOSAMINE SULFATE [Concomitant]
     Dosage: 1 MG, UNK
  3. METOPROLOL [Concomitant]
     Dosage: 1 MG, UNK
  4. SPIRONOLACTONE [Concomitant]
     Dosage: 1 MG, UNK
  5. TERIPARATIDE [Concomitant]
     Dosage: 1 A?G, UNK
  6. VITAMIN D [Concomitant]
     Dosage: 1 UNK, UNK
  7. CALCIUM D3                         /01483701/ [Concomitant]
  8. LIPITOR [Concomitant]
     Dosage: 1 MG, UNK
  9. PREDNISONE TAB [Concomitant]
     Dosage: 1 MG, UNK
  10. NEXIUM [Concomitant]
     Dosage: 1 MG, UNK
  11. BOOSTE [Concomitant]
     Dosage: 1 UNK, UNK
  12. ENBREL [Suspect]
     Indication: RHEUMATOID ARTHRITIS
     Dates: start: 20090914, end: 20100423
  13. IRON [Concomitant]
     Dosage: 1 MG, UNK
  14. GARLIC                             /01570501/ [Concomitant]
     Dosage: 1 MG, UNK
  15. LEVOTHYROXINE SODIUM [Concomitant]
     Dosage: 1 A?G, UNK

REACTIONS (2)
  - PLEURAL EFFUSION [None]
  - METASTATIC SQUAMOUS CELL CARCINOMA [None]
